FAERS Safety Report 22131886 (Version 1)
Quarter: 2023Q1

REPORT INFORMATION
  Report Type: Spontaneous
  Country: PT (occurrence: PT)
  Receive Date: 20230323
  Receipt Date: 20230323
  Transmission Date: 20230418
  Serious: Yes (Other)
  Sender: FDA-Public Use
  Company Number: PT-ROCHE-2883969

PATIENT
  Age: 57 Year
  Sex: Female
  Weight: 62 kg

DRUGS (39)
  1. TRASTUZUMAB [Suspect]
     Active Substance: TRASTUZUMAB
     Indication: HER2 positive breast cancer
     Dosage: 370 MILLIGRAM, Q3W
     Route: 042
     Dates: start: 20190408, end: 20190704
  2. TRASTUZUMAB [Suspect]
     Active Substance: TRASTUZUMAB
     Dosage: 500 MILLIGRAM, Q3W MOST RECENT DOSE PRIOR TO THE
     Route: 042
     Dates: start: 20190308, end: 20190308
  3. TRASTUZUMAB [Suspect]
     Active Substance: TRASTUZUMAB
     Dosage: 600 MILLIGRAM, Q3W
     Route: 058
     Dates: start: 20210107, end: 20220203
  4. ADO-TRASTUZUMAB EMTANSINE [Suspect]
     Active Substance: ADO-TRASTUZUMAB EMTANSINE
     Indication: HER2 positive breast cancer
     Dosage: 220 MILLIGRAM, Q3W
     Route: 042
     Dates: start: 20190726, end: 20201119
  5. PERTUZUMAB [Suspect]
     Active Substance: PERTUZUMAB
     Indication: HER2 positive breast cancer
     Dosage: 420 MILLIGRAM, Q3W
     Route: 042
     Dates: start: 20190408, end: 20190704
  6. PERTUZUMAB [Suspect]
     Active Substance: PERTUZUMAB
     Dosage: 840 MILLIGRAM, Q3W (MOST RECENT DOSE PRIOR TO
     Route: 042
     Dates: start: 20190308, end: 20190308
  7. DOCETAXEL [Suspect]
     Active Substance: DOCETAXEL
     Indication: HER2 positive breast cancer
     Dosage: 120 MILLIGRAM, Q3W (DATE OF MOST RECENT DOSE)
     Route: 042
     Dates: start: 20190308
  8. CAPECITABINE [Suspect]
     Active Substance: CAPECITABINE
     Indication: HER2 positive breast cancer
     Dosage: 2900 MILLIGRAM, QD, TWICE DAILY FOR 2 WEEKS1450
     Route: 048
     Dates: start: 20210201, end: 20210214
  9. CAPECITABINE [Suspect]
     Active Substance: CAPECITABINE
     Dosage: TWICE DAILY FOR 2 WEEKS2000
     Route: 048
     Dates: start: 20210318, end: 20210421
  10. CAPECITABINE [Suspect]
     Active Substance: CAPECITABINE
     Dosage: TWICE DAILY FOR 2 WEEKS1650
     Route: 048
     Dates: start: 20210430, end: 20210614
  11. FLUCONAZOLE [Concomitant]
     Active Substance: FLUCONAZOLE
     Indication: Onycholysis
     Dosage: ONGOING = NOT CHECKED
     Route: 065
     Dates: start: 20210429, end: 20210515
  12. TRAZODONE [Concomitant]
     Active Substance: TRAZODONE HYDROCHLORIDE
     Dosage: ONGOING = CHECKED
     Route: 065
  13. DEXAMETHASONE [Concomitant]
     Active Substance: DEXAMETHASONE
     Dosage: ONGOING = CHECKED
     Route: 065
     Dates: start: 20201210
  14. KETOPROFEN [Concomitant]
     Active Substance: KETOPROFEN
     Dosage: ONGOING = CHECKED
     Route: 065
     Dates: start: 20200513
  15. ATORVASTATIN [Concomitant]
     Active Substance: ATORVASTATIN
     Dosage: ONGOING = CHECKED
     Route: 065
  16. DESLORATADINE [Concomitant]
     Active Substance: DESLORATADINE
     Dosage: ONGOING = CHECKED
     Route: 065
  17. ZOLEDRONIC ACID [Concomitant]
     Active Substance: ZOLEDRONIC ACID
     Dosage: ONGOING = CHECKED
     Route: 065
     Dates: start: 20200401
  18. PREDNISOLONE [Concomitant]
     Active Substance: PREDNISOLONE
     Dosage: ONGOING = CHECKED
     Route: 065
     Dates: start: 20190429
  19. OMEPRAZOLE [Concomitant]
     Active Substance: OMEPRAZOLE
     Dosage: ONGOING = CHECKED
     Route: 065
  20. NEUROBION [Concomitant]
     Active Substance: CYANOCOBALAMIN\PYRIDOXINE\THIAMINE
     Indication: Neuropathy peripheral
     Dosage: ONGOING = CHECKED
     Route: 065
     Dates: start: 20210429
  21. IRBESARTAN [Concomitant]
     Active Substance: IRBESARTAN
     Dosage: ONGOING = CHECKED
     Route: 065
  22. LOPERAMIDE [Concomitant]
     Active Substance: LOPERAMIDE
     Dosage: ONGOING = CHECKED
     Route: 065
     Dates: start: 20210129
  23. NYSTATIN [Concomitant]
     Active Substance: NYSTATIN
     Dosage: ONGOING = CHECKED
     Route: 065
     Dates: start: 20190521
  24. ESCITALOPRAM [Concomitant]
     Active Substance: ESCITALOPRAM OXALATE
     Dosage: ONGOING = CHECKED
     Route: 065
     Dates: start: 20180305
  25. FUSIDIC ACID [Concomitant]
     Active Substance: FUSIDIC ACID
     Indication: Onycholysis
     Dosage: ONGOING = NOT CHECKED
     Route: 065
     Dates: start: 20210429, end: 20210524
  26. LACTULOSE [Concomitant]
     Active Substance: LACTULOSE
     Dosage: ONGOING = CHECKED
     Route: 065
  27. TRAMADOL [Concomitant]
     Active Substance: TRAMADOL
     Dosage: ONGOING = NOT CHECKED
     Route: 065
     Dates: start: 20190329
  28. ACETAMINOPHEN\THIOCOLCHICOSIDE [Concomitant]
     Active Substance: ACETAMINOPHEN\THIOCOLCHICOSIDE
     Dosage: ONGOING = CHECKED
     Route: 065
     Dates: start: 20200513
  29. CLEMASTINE [Concomitant]
     Active Substance: CLEMASTINE
     Dosage: ONGOING = CHECKED
     Route: 065
     Dates: start: 20190308
  30. QUETIAPINE [Concomitant]
     Active Substance: QUETIAPINE
     Dosage: ONGOING = CHECKED
     Route: 065
     Dates: start: 20210107
  31. DIAZEPAM [Concomitant]
     Active Substance: DIAZEPAM
     Dosage: ONGOING = CHECKED
     Route: 065
     Dates: start: 20210107
  32. BISOPROLOL [Concomitant]
     Active Substance: BISOPROLOL
     Dosage: ONGOING = CHECKED
     Route: 065
  33. METOCLOPRAMIDE [Concomitant]
     Active Substance: METOCLOPRAMIDE
     Dosage: ONGOING = CHECKED
     Route: 065
     Dates: start: 20190521
  34. METOCLOPRAMIDE [Concomitant]
     Active Substance: METOCLOPRAMIDE
     Dosage: ONGOING = CHECKED
     Route: 065
     Dates: start: 20210211
  35. HYDROXYZINE [Concomitant]
     Active Substance: HYDROXYZINE HYDROCHLORIDE
     Dosage: ONGOING = CHECKED
     Route: 065
     Dates: start: 20190726
  36. RIVOTRIL [Concomitant]
     Active Substance: CLONAZEPAM
     Dosage: ONGOING = CHECKED
     Route: 065
  37. LEVETIRACETAM [Concomitant]
     Active Substance: LEVETIRACETAM
     Dosage: ONGOING = CHECKED
     Route: 065
     Dates: start: 20210129
  38. METHYLPREDNISOLONE [Concomitant]
     Active Substance: METHYLPREDNISOLONE
     Dosage: ONGOING = CHECKED
     Route: 065
     Dates: start: 20190308
  39. FUROSEMIDE [Concomitant]
     Active Substance: FUROSEMIDE
     Dosage: ONGOING = CHECKED
     Route: 065
     Dates: start: 20190429

REACTIONS (3)
  - Neuropathy peripheral [Recovered/Resolved]
  - Palmar-plantar erythrodysaesthesia syndrome [Recovered/Resolved]
  - Onycholysis [Recovered/Resolved]

NARRATIVE: CASE EVENT DATE: 20210429
